FAERS Safety Report 6317026-3 (Version None)
Quarter: 2009Q3

REPORT INFORMATION
  Report Type: 
  Country: None (occurrence: None)
  Receive Date: 20090820
  Receipt Date: 20090810
  Transmission Date: 20100115
  Serious: Yes (Other)
  Sender: FDA-Public Use
  Company Number: US-GILEAD-2009-0023579

PATIENT
  Sex: Female
  Weight: 64.922 kg

DRUGS (2)
  1. TRUVADA [Suspect]
     Indication: HEPATITIS B
     Dates: start: 20070628, end: 20090709
  2. VIREAD [Suspect]
     Indication: HEPATITIS B
     Dates: start: 20090710

REACTIONS (1)
  - ABORTION SPONTANEOUS [None]
